FAERS Safety Report 25825819 (Version 1)
Quarter: 2025Q3

REPORT INFORMATION
  Report Type: Spontaneous
  Country: CA (occurrence: CA)
  Receive Date: 20250919
  Receipt Date: 20250919
  Transmission Date: 20251020
  Serious: Yes (Other)
  Sender: ORGANON
  Company Number: CA-ORGANON-O2503CAN002653

PATIENT
  Sex: Male

DRUGS (1)
  1. PROSCAR [Suspect]
     Active Substance: FINASTERIDE
     Indication: Product used for unknown indication
     Route: 065
     Dates: start: 20081008, end: 20081105

REACTIONS (9)
  - Erectile dysfunction [Unknown]
  - Loss of libido [Unknown]
  - Genital dryness [Unknown]
  - Depression [Unknown]
  - Sexual dysfunction [Unknown]
  - Anxiety [Unknown]
  - Disturbance in attention [Unknown]
  - Disturbance in social behaviour [Unknown]
  - Cognitive disorder [Unknown]

NARRATIVE: CASE EVENT DATE: 20080101
